FAERS Safety Report 8838729 (Version 3)
Quarter: 2013Q1

REPORT INFORMATION
  Report Type: Spontaneous
  Country: US (occurrence: US)
  Receive Date: 20121012
  Receipt Date: 20130123
  Transmission Date: 20140127
  Serious: Yes (Hospitalization, Other)
  Sender: FDA-Public Use
  Company Number: US-009507513-1210USA003273

PATIENT
  Sex: 0

DRUGS (1)
  1. NUVARING [Suspect]
     Indication: CONTRACEPTION
     Dosage: UNK
     Route: 067
     Dates: start: 20090914, end: 20100221

REACTIONS (5)
  - Deep vein thrombosis [Not Recovered/Not Resolved]
  - Abortion spontaneous [Recovered/Resolved]
  - Unintended pregnancy [Unknown]
  - Substance use [Unknown]
  - Treatment noncompliance [Unknown]
